FAERS Safety Report 7278478-8 (Version None)
Quarter: 2011Q1

REPORT INFORMATION
  Report Type: 
  Country: None (occurrence: None)
  Receive Date: 20110202
  Receipt Date: 20110202
  Transmission Date: 20110831
  Serious: Yes (Life-Threatening, Hospitalization)
  Sender: FDA-Public Use
  Company Number: None

PATIENT
  Age: 28 Year
  Sex: Female

DRUGS (3)
  1. VALACYCLOVIR [Concomitant]
  2. RISPERDONE [Suspect]
     Indication: PSYCHOTIC DISORDER
     Dosage: 4 MG AT BEDTIME PO
     Route: 048
     Dates: start: 20101004, end: 20101008
  3. HALOPERIDOL LACTATE [Suspect]
     Indication: AGGRESSION
     Dosage: 10 MG STAT IM
     Route: 030
     Dates: start: 20101009, end: 20101010

REACTIONS (16)
  - ALANINE AMINOTRANSFERASE INCREASED [None]
  - MUSCLE RIGIDITY [None]
  - HEART RATE INCREASED [None]
  - MUSCULOSKELETAL STIFFNESS [None]
  - NEUROLEPTIC MALIGNANT SYNDROME [None]
  - WHITE BLOOD CELL COUNT INCREASED [None]
  - REFUSAL OF TREATMENT BY PATIENT [None]
  - NO THERAPEUTIC RESPONSE [None]
  - PERIPHERAL COLDNESS [None]
  - BODY TEMPERATURE INCREASED [None]
  - BLOOD CREATINE PHOSPHOKINASE INCREASED [None]
  - BLOOD THYROID STIMULATING HORMONE INCREASED [None]
  - UNRESPONSIVE TO STIMULI [None]
  - EYE MOVEMENT DISORDER [None]
  - ASPARTATE AMINOTRANSFERASE INCREASED [None]
  - HYPERHIDROSIS [None]
